FAERS Safety Report 7713651-3 (Version None)
Quarter: 2011Q3

REPORT INFORMATION
  Report Type: 
  Country: None (occurrence: None)
  Receive Date: 20110826
  Receipt Date: 20110823
  Transmission Date: 20111222
  Serious: Yes (Life-Threatening, Hospitalization)
  Sender: FDA-Public Use
  Company Number: PHHY2011US75209

PATIENT
  Age: 62 Year
  Sex: Male

DRUGS (1)
  1. METFORMIN HCL [Suspect]
     Dosage: 1000 MG, BID

REACTIONS (10)
  - BLOOD PRESSURE SYSTOLIC INCREASED [None]
  - LACTIC ACIDOSIS [None]
  - BODY TEMPERATURE DECREASED [None]
  - ABDOMINAL PAIN [None]
  - RESPIRATORY DISORDER [None]
  - METABOLIC ACIDOSIS [None]
  - DIARRHOEA [None]
  - ABDOMINAL TENDERNESS [None]
  - NAUSEA [None]
  - HEART RATE INCREASED [None]
